FAERS Safety Report 6737602-3 (Version None)
Quarter: 2010Q2

REPORT INFORMATION
  Report Type: 
  Country: None (occurrence: None)
  Receive Date: 20100524
  Receipt Date: 20100517
  Transmission Date: 20101027
  Serious: Yes (Hospitalization)
  Sender: FDA-Public Use
  Company Number: US-RB-005485-10

PATIENT
  Age: 25 Year
  Sex: Male

DRUGS (1)
  1. SUBOXONE [Suspect]
     Route: 060
     Dates: start: 20081101

REACTIONS (4)
  - DECREASED APPETITE [None]
  - DRUG DEPENDENCE [None]
  - HERNIA [None]
  - JAW FRACTURE [None]
